FAERS Safety Report 9805278 (Version 1)
Quarter: 2014Q1

REPORT INFORMATION
  Report Type: Spontaneous
  Country: GB (occurrence: None)
  Receive Date: 20140106
  Receipt Date: 20140106
  Transmission Date: 20141002
  Serious: Yes (Hospitalization, Disabling)
  Sender: FDA-Public Use
  Company Number: AUR-APL-2013-10813

PATIENT
  Age: 68 Year
  Sex: 0

DRUGS (2)
  1. RANITIDINE (RANITIDINE) [Suspect]
     Indication: PRODUCT USED FOR UNKNOWN INDICATION
     Dosage: (150 MG, 2 IN 1 D)
     Route: 048
  2. DOXYCYCLINE (DOXYCYCLINE) [Suspect]
     Indication: PRODUCT USED FOR UNKNOWN INDICATION
     Dosage: (100 MG, 2 IN 1 D)
     Route: 048
     Dates: start: 20110118, end: 20110122

REACTIONS (1)
  - Clostridium test positive [None]
